FAERS Safety Report 15034194 (Version 1)
Quarter: 2018Q2

REPORT INFORMATION
  Report Type: Spontaneous
  Country: US (occurrence: US)
  Receive Date: 20180620
  Receipt Date: 20180620
  Transmission Date: 20180711
  Serious: No
  Sender: FDA-Public Use
  Company Number: US-TEVA-2018-US-861945

PATIENT
  Age: 29 Year
  Sex: Male

DRUGS (7)
  1. DUPILUMAB [Suspect]
     Active Substance: DUPILUMAB
     Indication: DERMATITIS ATOPIC
     Dosage: 600 MG SUBCUTANEOUSLY ON DAY 0
     Route: 058
     Dates: start: 20170405
  2. USTEKINUMAB [Suspect]
     Active Substance: USTEKINUMAB
     Indication: DERMATITIS ATOPIC
     Route: 065
     Dates: start: 20160816, end: 20160915
  3. SECUKINUMAB. [Concomitant]
     Active Substance: SECUKINUMAB
     Indication: DERMATITIS ATOPIC
     Route: 065
     Dates: start: 20161011, end: 20170405
  4. PREDNISONE. [Suspect]
     Active Substance: PREDNISONE
     Indication: DERMATITIS ATOPIC
     Route: 065
     Dates: end: 20161122
  5. DUPILUMAB [Suspect]
     Active Substance: DUPILUMAB
     Indication: DERMATITIS ATOPIC
     Dosage: BEGINNING ON DAY 15
     Route: 058
  6. ADALIMUMAB [Concomitant]
     Active Substance: ADALIMUMAB
     Indication: DERMATITIS ATOPIC
     Route: 065
     Dates: start: 20160726, end: 20160830
  7. APREMILAST [Suspect]
     Active Substance: APREMILAST
     Indication: DERMATITIS ATOPIC
     Route: 065
     Dates: start: 20160830, end: 20160915

REACTIONS (4)
  - Diarrhoea [Unknown]
  - Osteopenia [Unknown]
  - Pruritus generalised [Unknown]
  - Alopecia areata [Recovering/Resolving]
